FAERS Safety Report 24572402 (Version 1)
Quarter: 2024Q4

REPORT INFORMATION
  Report Type: Spontaneous
  Country: US (occurrence: None)
  Receive Date: 20241101
  Receipt Date: 20241101
  Transmission Date: 20250114
  Serious: Yes (Other)
  Sender: Public
  Company Number: None

PATIENT
  Age: 29 Year
  Sex: Female
  Weight: 72.9 kg

DRUGS (1)
  1. CYCLOPHOSPHAMIDE [Suspect]
     Active Substance: CYCLOPHOSPHAMIDE
     Indication: Breast cancer
     Dosage: OTHER FREQUENCY : EVERY 14 DAYS;?
     Dates: start: 20241030

REACTIONS (1)
  - Nasal discomfort [None]

NARRATIVE: CASE EVENT DATE: 20241030
